FAERS Safety Report 4784968-X (Version None)
Quarter: 2005Q3

REPORT INFORMATION
  Report Type: 
  Country: None (occurrence: None)
  Receive Date: 20050930
  Receipt Date: 20050916
  Transmission Date: 20060218
  Serious: Yes (Death, Hospitalization)
  Sender: FDA-Public Use
  Company Number: US-AMGEN-US150823

PATIENT
  Sex: Male

DRUGS (6)
  1. ENBREL [Suspect]
     Indication: RHEUMATOID ARTHRITIS
     Route: 058
     Dates: start: 20030101, end: 20041201
  2. PREDNISONE [Concomitant]
     Route: 048
     Dates: start: 20040101
  3. PLAQUENIL [Concomitant]
     Route: 048
     Dates: start: 20020301
  4. ARAVA [Concomitant]
     Dates: start: 20040501
  5. OXYGEN [Concomitant]
  6. BEXTRA [Concomitant]

REACTIONS (8)
  - ACUTE RESPIRATORY DISTRESS SYNDROME [None]
  - CEREBRAL HAEMORRHAGE [None]
  - CEREBRAL INFARCTION [None]
  - DYSPNOEA [None]
  - GENERAL PHYSICAL HEALTH DETERIORATION [None]
  - HYPOTENSION [None]
  - OXYGEN SATURATION DECREASED [None]
  - RENAL FAILURE [None]
